FAERS Safety Report 16286459 (Version 1)
Quarter: 2019Q2

REPORT INFORMATION
  Report Type: Spontaneous
  Country: US (occurrence: US)
  Receive Date: 20190508
  Receipt Date: 20190508
  Transmission Date: 20190711
  Serious: No
  Sender: FDA-Public Use
  Company Number: US-PERRIGO-19US002930

PATIENT
  Age: 63 Year
  Sex: Female
  Weight: 61.22 kg

DRUGS (4)
  1. ESTRADIOL. [Suspect]
     Active Substance: ESTRADIOL
     Dosage: 2 G, THREE TIMES A WEEK
     Route: 067
     Dates: start: 201801, end: 201812
  2. ESTRADIOL. [Suspect]
     Active Substance: ESTRADIOL
     Dosage: 2 G, TWICE A WEEK
     Route: 067
     Dates: start: 201901
  3. ESTRADIOL. [Suspect]
     Active Substance: ESTRADIOL
     Dosage: 2 G, THREE TIMES A WEEK
     Route: 067
     Dates: start: 201801, end: 201812
  4. ESTRADIOL. [Suspect]
     Active Substance: ESTRADIOL
     Indication: POSTMENOPAUSE
     Dosage: 2 G, TWICE A WEEK
     Route: 067
     Dates: start: 201901

REACTIONS (2)
  - Underdose [Unknown]
  - Vaginal haemorrhage [Not Recovered/Not Resolved]

NARRATIVE: CASE EVENT DATE: 201902
